FAERS Safety Report 7374898-1 (Version None)
Quarter: 2011Q1

REPORT INFORMATION
  Report Type: 
  Country: None (occurrence: None)
  Receive Date: 20110325
  Receipt Date: 20110317
  Transmission Date: 20110831
  Serious: Yes (Hospitalization)
  Sender: FDA-Public Use
  Company Number: NL-ELI_LILLY_AND_COMPANY-NL201103005734

PATIENT
  Sex: Female

DRUGS (1)
  1. ZYPADHERA [Suspect]
     Dosage: UNK, UNKNOWN

REACTIONS (4)
  - HOSPITALISATION [None]
  - SOMNOLENCE [None]
  - FATIGUE [None]
  - INJECTION SITE EXTRAVASATION [None]
